FAERS Safety Report 16534768 (Version 1)
Quarter: 2019Q3

REPORT INFORMATION
  Report Type: Spontaneous
  Country: KR (occurrence: KR)
  Receive Date: 20190705
  Receipt Date: 20190705
  Transmission Date: 20191004
  Serious: Yes (Other)
  Sender: FDA-Public Use
  Company Number: KR-GLAXOSMITHKLINE-KR2019GSK119564

PATIENT
  Age: 61 Year
  Sex: Male

DRUGS (1)
  1. VALACYCLOVIR [Suspect]
     Active Substance: VALACYCLOVIR HYDROCHLORIDE
     Indication: VIRAL INFECTION
     Dosage: UNK

REACTIONS (5)
  - Dysphagia [Recovered/Resolved]
  - Facial paralysis [Recovered/Resolved]
  - Somnolence [Recovered/Resolved]
  - Neuropathy peripheral [Recovered/Resolved]
  - Ill-defined disorder [Recovered/Resolved]
